FAERS Safety Report 21292949 (Version 1)
Quarter: 2022Q3

REPORT INFORMATION
  Report Type: Report from Study
  Country: CA (occurrence: CA)
  Receive Date: 20220905
  Receipt Date: 20220905
  Transmission Date: 20221026
  Serious: Yes (Other)
  Sender: FDA-Public Use
  Company Number: CA-GILEAD-2022-0595716

PATIENT
  Sex: Female

DRUGS (1)
  1. SOFOSBUVIR\VELPATASVIR [Suspect]
     Active Substance: SOFOSBUVIR\VELPATASVIR
     Indication: Hepatitis C
     Dosage: UNK
     Route: 065
     Dates: start: 20220728

REACTIONS (7)
  - Autoimmune disorder [Unknown]
  - Burning sensation [Unknown]
  - Discharge [Unknown]
  - Stress [Unknown]
  - Arthropod sting [Unknown]
  - Pruritus [Unknown]
  - Rash vesicular [Unknown]
